FAERS Safety Report 14609114 (Version 1)
Quarter: 2018Q1

REPORT INFORMATION
  Report Type: Spontaneous
  Country: BR (occurrence: BR)
  Receive Date: 20180307
  Receipt Date: 20180307
  Transmission Date: 20180509
  Serious: Yes (Other)
  Sender: FDA-Public Use
  Company Number: BR-ASTRAZENECA-2018SE26759

PATIENT
  Sex: Female

DRUGS (1)
  1. SYMBICORT [Suspect]
     Active Substance: BUDESONIDE\FORMOTEROL FUMARATE DIHYDRATE
     Indication: ASTHMA
     Dosage: 320/9 MCG, UNKNOWN UNKNOWN
     Route: 055

REACTIONS (5)
  - Expired product administered [Not Recovered/Not Resolved]
  - Drug dispensing error [Not Recovered/Not Resolved]
  - Tachycardia [Not Recovered/Not Resolved]
  - Asthmatic crisis [Not Recovered/Not Resolved]
  - Chills [Not Recovered/Not Resolved]

NARRATIVE: CASE EVENT DATE: 2018
